FAERS Safety Report 17336429 (Version 2)
Quarter: 2020Q1

REPORT INFORMATION
  Report Type: Spontaneous
  Country: US (occurrence: US)
  Receive Date: 20200128
  Receipt Date: 20200210
  Transmission Date: 20200409
  Serious: No
  Sender: FDA-Public Use
  Company Number: US-JNJFOC-20200132702

PATIENT
  Age: 26 Year
  Sex: Female
  Weight: 95.79 kg

DRUGS (7)
  1. CLONAZEPAM. [Concomitant]
     Active Substance: CLONAZEPAM
     Indication: AGITATION
     Route: 065
     Dates: start: 20191227, end: 20200117
  2. INVEGA SUSTENNA [Suspect]
     Active Substance: PALIPERIDONE PALMITATE
     Indication: SCHIZOPHRENIA
     Route: 030
     Dates: start: 20200115, end: 20200115
  3. THORAZINE [Concomitant]
     Active Substance: CHLORPROMAZINE
  4. CHLORPROMAZINE. [Concomitant]
     Active Substance: CHLORPROMAZINE
     Indication: PSYCHOTIC BEHAVIOUR
     Route: 065
     Dates: start: 20191227, end: 20200123
  5. INVEGA [Suspect]
     Active Substance: PALIPERIDONE
     Indication: SCHIZOPHRENIA
     Route: 048
  6. DIPHENHYDRAMINE. [Concomitant]
     Active Substance: DIPHENHYDRAMINE
     Indication: EXTRAPYRAMIDAL DISORDER
     Route: 065
     Dates: start: 20200115
  7. CLOZAPINE. [Concomitant]
     Active Substance: CLOZAPINE
     Route: 065

REACTIONS (2)
  - Product administered at inappropriate site [Unknown]
  - Off label use [Unknown]
